FAERS Safety Report 6735355-6 (Version None)
Quarter: 2010Q2

REPORT INFORMATION
  Report Type: 
  Country: None (occurrence: None)
  Receive Date: 20100521
  Receipt Date: 20100511
  Transmission Date: 20101027
  Serious: Yes (Other)
  Sender: FDA-Public Use
  Company Number: US-WYE-H15092810

PATIENT
  Sex: Female
  Weight: 63.56 kg

DRUGS (2)
  1. EFFEXOR [Suspect]
     Indication: OBSESSIVE-COMPULSIVE DISORDER
     Dates: start: 20040101
  2. EFFEXOR [Suspect]
     Dosage: RESUMED ON AN UNSPECIFIED DATE, THEN TAPERED IN ATTEMPTS TO DISCONTINUE

REACTIONS (8)
  - ANXIETY [None]
  - DEPRESSION [None]
  - DEPRESSION SUICIDAL [None]
  - DRUG DEPENDENCE [None]
  - DRUG WITHDRAWAL SYNDROME [None]
  - FLAT AFFECT [None]
  - PARAESTHESIA [None]
  - SUICIDAL IDEATION [None]
